FAERS Safety Report 6054361-0 (Version None)
Quarter: 2009Q1

REPORT INFORMATION
  Report Type: 
  Country: None (occurrence: None)
  Receive Date: 20090127
  Receipt Date: 20090119
  Transmission Date: 20090719
  Serious: Yes (Life-Threatening)
  Sender: FDA-Public Use
  Company Number: FR-ABBOTT-09P-056-0498410-00

PATIENT
  Age: 47 Year
  Sex: Female

DRUGS (3)
  1. VERCYTE [Suspect]
     Indication: THROMBOCYTHAEMIA
     Route: 048
     Dates: start: 19930101, end: 20060101
  2. HYDROXYCARBAMID [Suspect]
     Indication: THROMBOCYTHAEMIA
     Route: 048
     Dates: start: 19830101, end: 19930101
  3. ANAGRELID [Suspect]
     Indication: THROMBOCYTHAEMIA
     Route: 047
     Dates: start: 20060401, end: 20081001

REACTIONS (1)
  - ACUTE MYELOID LEUKAEMIA [None]
